FAERS Safety Report 24683939 (Version 1)
Quarter: 2024Q4

REPORT INFORMATION
  Report Type: Spontaneous
  Country: US (occurrence: US)
  Receive Date: 20241202
  Receipt Date: 20241202
  Transmission Date: 20250114
  Serious: Yes (Other)
  Sender: DR REDDYS
  Company Number: US-DRL-USA-LIT/USA/24/0017616

PATIENT
  Age: 39 Year
  Sex: Male

DRUGS (4)
  1. FESOTERODINE [Suspect]
     Active Substance: FESOTERODINE
     Indication: Cystitis interstitial
  2. OXYBUTYNIN [Suspect]
     Active Substance: OXYBUTYNIN
     Indication: Cystitis interstitial
  3. TROSPIUM CHLORIDE [Suspect]
     Active Substance: TROSPIUM CHLORIDE
     Indication: Cystitis interstitial
  4. MIRABEGRON [Suspect]
     Active Substance: MIRABEGRON
     Indication: Cystitis interstitial

REACTIONS (4)
  - Chronic kidney disease [Unknown]
  - Hydronephrosis [Unknown]
  - Acute kidney injury [Unknown]
  - Product use in unapproved indication [Unknown]
